FAERS Safety Report 9833824 (Version 1)
Quarter: 2014Q1

REPORT INFORMATION
  Report Type: Spontaneous
  Country: US (occurrence: US)
  Receive Date: 20140122
  Receipt Date: 20140122
  Transmission Date: 20141002
  Serious: No
  Sender: FDA-Public Use
  Company Number: US-BIOGENIDEC-2014BI004822

PATIENT
  Age: 51 Year
  Sex: Female
  Weight: 58 kg

DRUGS (3)
  1. TECFIDERA [Suspect]
     Indication: MULTIPLE SCLEROSIS
     Route: 048
     Dates: start: 20130731
  2. GILENYA [Concomitant]
  3. BABY ASPIRIN [Concomitant]

REACTIONS (3)
  - Contusion [Unknown]
  - Pruritus [Recovered/Resolved]
  - Erythema [Recovered/Resolved]
